FAERS Safety Report 22522534 (Version 1)
Quarter: 2023Q2

REPORT INFORMATION
  Report Type: Report from Study
  Country: PL (occurrence: PL)
  Receive Date: 20230605
  Receipt Date: 20230605
  Transmission Date: 20230721
  Serious: Yes (Hospitalization)
  Sender: FDA-Public Use
  Company Number: PL-002147023-NVSC2023PL052494

PATIENT
  Age: 60 Year
  Sex: Male
  Weight: 93 kg

DRUGS (18)
  1. INCLISIRAN [Suspect]
     Active Substance: INCLISIRAN
     Indication: Cardiovascular event prophylaxis
     Dosage: CODE NOT BROKEN
     Route: 058
     Dates: start: 20221012
  2. INVESTIGATIONAL PRODUCT [Suspect]
     Active Substance: INVESTIGATIONAL PRODUCT
     Indication: Cardiovascular event prophylaxis
     Dosage: CODE NOT BROKEN
     Route: 058
     Dates: start: 20221012
  3. PLACEBO [Suspect]
     Active Substance: UNSPECIFIED INGREDIENT
     Indication: Cardiovascular event prophylaxis
     Dosage: CODE NOT BROKEN
     Route: 058
     Dates: start: 20221012
  4. ATORVASTATIN CALCIUM [Concomitant]
     Active Substance: ATORVASTATIN CALCIUM
     Indication: Dyslipidaemia
     Dosage: UNK
     Route: 065
     Dates: start: 20220619
  5. ATORVASTATIN CALCIUM [Concomitant]
     Active Substance: ATORVASTATIN CALCIUM
     Indication: Hyperlipidaemia
  6. ASPIRIN [Concomitant]
     Active Substance: ASPIRIN
     Indication: Ischaemic cardiomyopathy
     Dosage: UNK
     Route: 065
     Dates: start: 2008
  7. EZEN [Concomitant]
     Indication: Dyslipidaemia
     Dosage: UNK
     Route: 065
     Dates: start: 20220619
  8. EZEN [Concomitant]
     Indication: Hyperlipidaemia
  9. FENOFIBRATE [Concomitant]
     Active Substance: FENOFIBRATE
     Indication: Dyslipidaemia
     Dosage: UNK
     Route: 065
     Dates: start: 20220619
  10. FENOFIBRATE [Concomitant]
     Active Substance: FENOFIBRATE
     Indication: Hyperlipidaemia
  11. TICAGRELOR [Concomitant]
     Active Substance: TICAGRELOR
     Indication: Myocardial infarction
     Dosage: UNK
     Route: 065
     Dates: start: 20220619
  12. BISOPROLOL [Concomitant]
     Active Substance: BISOPROLOL
     Indication: Ischaemic cardiomyopathy
     Dosage: UNK
     Route: 065
     Dates: start: 2008
  13. CARZAP [Concomitant]
     Indication: Hypertension
     Dosage: UNK
     Route: 065
     Dates: start: 20220905
  14. LECALPIN [Concomitant]
     Indication: Hypertension
     Dosage: UNK
     Route: 065
     Dates: start: 20220623
  15. TORSEMIDE [Concomitant]
     Active Substance: TORSEMIDE
     Indication: Ischaemic cardiomyopathy
     Dosage: UNK
     Route: 065
     Dates: start: 20220623
  16. OMEPRAZOLE [Concomitant]
     Active Substance: OMEPRAZOLE
     Indication: Prophylaxis
     Dosage: UNK
     Route: 065
     Dates: start: 20220619
  17. GLICLAZIDE [Concomitant]
     Active Substance: GLICLAZIDE
     Indication: Diabetes mellitus
     Dosage: UNK
     Route: 065
     Dates: start: 20220720
  18. METFORMIN HYDROCHLORIDE [Concomitant]
     Active Substance: METFORMIN HYDROCHLORIDE
     Indication: Diabetes mellitus
     Dosage: UNK
     Route: 065
     Dates: start: 20220720

REACTIONS (1)
  - Acute myocardial infarction [Recovered/Resolved]

NARRATIVE: CASE EVENT DATE: 20230222
